FAERS Safety Report 5094981-3 (Version None)
Quarter: 2006Q3

REPORT INFORMATION
  Report Type: 
  Country: None (occurrence: None)
  Receive Date: 20060728
  Receipt Date: 20060330
  Transmission Date: 20061208
  Serious: No
  Sender: FDA-Public Use
  Company Number: COT_0505_2006

PATIENT
  Age: 46 Year
  Sex: Female
  Weight: 54.8852 kg

DRUGS (10)
  1. VENTAVIS [Suspect]
     Indication: PULMONARY HYPERTENSION
     Dosage: 5 MCG 7XD IH
     Route: 055
     Dates: start: 20060308
  2. DETROL LA [Concomitant]
  3. FEOSOL [Concomitant]
  4. NORVASC [Concomitant]
  5. PAXIL [Concomitant]
  6. CAPTOPRIL [Concomitant]
  7. PRILOSEC [Concomitant]
  8. ASPIRIN [Concomitant]
  9. SITAXSENTIN [Concomitant]
  10. OXYGEN [Concomitant]

REACTIONS (1)
  - TONGUE SPASM [None]
